FAERS Safety Report 23764299 (Version 1)
Quarter: 2024Q2

REPORT INFORMATION
  Report Type: Spontaneous
  Country: US (occurrence: US)
  Receive Date: 20240420
  Receipt Date: 20240420
  Transmission Date: 20240715
  Serious: No
  Sender: FDA-Public Use
  Company Number: US-HALEON-2166709

PATIENT

DRUGS (1)
  1. EX-LAX REGULAR STRENGTH CHOCOLATED STIMULANT LAXATIVE [Suspect]
     Active Substance: SENNOSIDES
     Indication: Product used for unknown indication
     Dosage: EXPDATE:20261130

REACTIONS (1)
  - Incorrect dose administered [Unknown]
